FAERS Safety Report 23835469 (Version 1)
Quarter: 2024Q2

REPORT INFORMATION
  Report Type: Spontaneous
  Country: DE (occurrence: DE)
  Receive Date: 20240509
  Receipt Date: 20240509
  Transmission Date: 20240715
  Serious: No
  Sender: FDA-Public Use
  Company Number: DE-ALKEM LABORATORIES LIMITED-DE-ALKEM-2024-03887

PATIENT
  Age: 16 Year
  Sex: Female

DRUGS (15)
  1. AZATHIOPRINE [Suspect]
     Active Substance: AZATHIOPRINE
     Indication: Product used for unknown indication
     Dosage: UNK
     Route: 065
  2. MYCOPHENOLATE MOFETIL [Suspect]
     Active Substance: MYCOPHENOLATE MOFETIL
     Indication: Product used for unknown indication
     Dosage: UNK
     Route: 065
  3. ETANERCEPT [Suspect]
     Active Substance: ETANERCEPT
     Indication: Arthritis
     Dosage: UNK (2.5 YEARS)
     Route: 065
  4. ETANERCEPT [Suspect]
     Active Substance: ETANERCEPT
     Indication: Inflammation
  5. METHOTREXATE [Suspect]
     Active Substance: METHOTREXATE
     Indication: Arthritis
     Dosage: UNK
     Route: 065
  6. METHOTREXATE [Suspect]
     Active Substance: METHOTREXATE
     Indication: Inflammation
     Dosage: UNK (CUMULATIVE GREATER THAN 2 YEARS)
     Route: 065
  7. CYCLOSPORINE [Concomitant]
     Active Substance: CYCLOSPORINE
     Indication: Product used for unknown indication
     Dosage: UNK
     Route: 065
  8. COLCHICINE [Concomitant]
     Active Substance: COLCHICINE
     Indication: Arthritis
     Dosage: 2 (MILLIGRAM PER KGGL) (COLCHICINE WAS INTENSIFIED)
     Route: 065
  9. COLCHICINE [Concomitant]
     Active Substance: COLCHICINE
     Indication: Inflammation
     Dosage: 1 MILLIGRAM/KILOGRAM
     Route: 065
  10. DAPSONE [Concomitant]
     Active Substance: DAPSONE
     Indication: Product used for unknown indication
     Dosage: UNK
     Route: 065
  11. METHYLPREDNISOLONE [Concomitant]
     Active Substance: METHYLPREDNISOLONE
     Indication: Product used for unknown indication
     Dosage: UNK
     Route: 065
  12. PREDNISOLONE [Concomitant]
     Active Substance: PREDNISOLONE
     Indication: Product used for unknown indication
     Dosage: UNK
     Route: 065
  13. PURINETHOL [Concomitant]
     Active Substance: MERCAPTOPURINE
     Indication: Product used for unknown indication
     Dosage: UNK
     Route: 065
  14. REMICADE [Concomitant]
     Active Substance: INFLIXIMAB
     Indication: Product used for unknown indication
     Dosage: 11 MILLIGRAM/KILOGRAM
     Route: 042
  15. REMICADE [Concomitant]
     Active Substance: INFLIXIMAB
     Dosage: 6 MILLIGRAM/KILOGRAM (INFUSION AT 4-WEEK INTERVALS WITH AN INITIAL ONE-TIME TOP-UP AFTER 2 WEEKS)
     Route: 065

REACTIONS (4)
  - Gastrointestinal disorder [Unknown]
  - Full blood count abnormal [Unknown]
  - Nausea [Unknown]
  - Off label use [Unknown]
